FAERS Safety Report 12750661 (Version 3)
Quarter: 2016Q4

REPORT INFORMATION
  Report Type: Spontaneous
  Country: US (occurrence: US)
  Receive Date: 20160916
  Receipt Date: 20161020
  Transmission Date: 20170207
  Serious: No
  Sender: FDA-Public Use
  Company Number: US-ACTELION-A-NJ2016-141996

PATIENT
  Age: 29 Year
  Sex: Female

DRUGS (3)
  1. VELETRI [Suspect]
     Active Substance: EPOPROSTENOL
     Indication: PULMONARY ARTERIAL HYPERTENSION
     Dosage: 6 NG/KG, PER MIN
     Route: 042
     Dates: start: 20160901
  2. AMLODIPINE [Concomitant]
     Active Substance: AMLODIPINE BESYLATE
  3. ADCIRCA [Concomitant]
     Active Substance: TADALAFIL

REACTIONS (14)
  - Pain in jaw [Unknown]
  - Diarrhoea [Unknown]
  - Tinnitus [Unknown]
  - Application site pruritus [Unknown]
  - Application site erythema [Unknown]
  - Hypersensitivity [Unknown]
  - Dyspepsia [Unknown]
  - Catheter site pain [Unknown]
  - Decreased appetite [Unknown]
  - Headache [Unknown]
  - Myalgia [Unknown]
  - Neuropathy peripheral [Unknown]
  - Fatigue [Unknown]
  - Rash [Unknown]
